FAERS Safety Report 15134280 (Version 1)
Quarter: 2018Q3

REPORT INFORMATION
  Report Type: Spontaneous
  Country: IT (occurrence: IT)
  Receive Date: 20180712
  Receipt Date: 20180712
  Transmission Date: 20181010
  Serious: Yes (Other)
  Sender: FDA-Public Use
  Company Number: PHHY2018IT038957

PATIENT
  Age: 27 Year
  Sex: Female

DRUGS (1)
  1. GILENYA [Suspect]
     Active Substance: FINGOLIMOD HYDROCHLORIDE
     Indication: RELAPSING-REMITTING MULTIPLE SCLEROSIS
     Route: 065

REACTIONS (7)
  - Tumefactive multiple sclerosis [Unknown]
  - Oedema peripheral [Unknown]
  - Multiple sclerosis relapse [Unknown]
  - Dysphagia [Unknown]
  - Rebound effect [Unknown]
  - Quadriparesis [Unknown]
  - Cognitive disorder [Unknown]
